FAERS Safety Report 25361393 (Version 4)
Quarter: 2025Q3

REPORT INFORMATION
  Report Type: Spontaneous
  Country: CN (occurrence: CN)
  Receive Date: 20250527
  Receipt Date: 20250710
  Transmission Date: 20251021
  Serious: Yes (Death, Other)
  Sender: ROCHE
  Company Number: CN-ROCHE-10000281294

PATIENT
  Age: 70 Year
  Sex: Male

DRUGS (3)
  1. GLOFITAMAB [Suspect]
     Active Substance: GLOFITAMAB
     Indication: Diffuse large B-cell lymphoma
     Route: 042
     Dates: start: 20250507
  2. OBINUTUZUMAB [Suspect]
     Active Substance: OBINUTUZUMAB
     Indication: Diffuse large B-cell lymphoma
     Route: 065
     Dates: start: 20250430
  3. TOCILIZUMAB [Suspect]
     Active Substance: TOCILIZUMAB
     Indication: Cytokine release syndrome
     Route: 065

REACTIONS (4)
  - Cytokine release syndrome [Fatal]
  - Pleural effusion [Unknown]
  - Shock [Unknown]
  - Multiple organ dysfunction syndrome [Unknown]

NARRATIVE: CASE EVENT DATE: 20250507
